FAERS Safety Report 22287355 (Version 1)
Quarter: 2023Q2

REPORT INFORMATION
  Report Type: Spontaneous
  Country: IL (occurrence: IL)
  Receive Date: 20230505
  Receipt Date: 20230505
  Transmission Date: 20230722
  Serious: Yes (Other)
  Sender: FDA-Public Use
  Company Number: IL-SUN PHARMACEUTICAL INDUSTRIES LTD-2023R1-387479

PATIENT
  Age: 6 Month
  Sex: Male

DRUGS (1)
  1. PREDNISONE [Suspect]
     Active Substance: PREDNISONE
     Indication: Enterovirus infection
     Dosage: UNK
     Route: 065

REACTIONS (6)
  - Respiratory distress [Unknown]
  - Pneumocystis jirovecii pneumonia [Unknown]
  - Neutrophilia [Unknown]
  - Lymphopenia [Unknown]
  - Thrombocytopenia [Unknown]
  - Immunodeficiency [Unknown]
